FAERS Safety Report 13626903 (Version 3)
Quarter: 2017Q3

REPORT INFORMATION
  Report Type: Spontaneous
  Country: US (occurrence: US)
  Receive Date: 20170608
  Receipt Date: 20170728
  Transmission Date: 20171127
  Serious: No
  Sender: FDA-Public Use
  Company Number: US-GLAXOSMITHKLINE-US2017087147

PATIENT
  Age: 74 Year
  Sex: Male
  Weight: 121.9 kg

DRUGS (2)
  1. SPIRIVA [Concomitant]
     Active Substance: TIOTROPIUM BROMIDE MONOHYDRATE
  2. BREO ELLIPTA [Suspect]
     Active Substance: FLUTICASONE FUROATE\VILANTEROL TRIFENATATE
     Indication: CHRONIC OBSTRUCTIVE PULMONARY DISEASE
     Dosage: 1 PUFF(S), QD
     Route: 055
     Dates: start: 20160302

REACTIONS (4)
  - Wrong technique in product usage process [Unknown]
  - Product quality issue [Unknown]
  - Device use error [Unknown]
  - Drug dose omission [Unknown]

NARRATIVE: CASE EVENT DATE: 201706
